FAERS Safety Report 6532248-4 (Version None)
Quarter: 2010Q1

REPORT INFORMATION
  Report Type: 
  Country: None (occurrence: None)
  Receive Date: 20100108
  Receipt Date: 20091230
  Transmission Date: 20100710
  Serious: Yes (Hospitalization)
  Sender: FDA-Public Use
  Company Number: PHHY2009FR59395

PATIENT
  Sex: Male
  Weight: 3.61 kg

DRUGS (2)
  1. TRILEPTAL [Suspect]
     Dosage: MATERNAL DOSE WAS 600 MG, QD
     Route: 064
  2. NEURONTIN [Suspect]
     Dosage: MATERNAL DOSE WAS 300 MG,QD
     Route: 064

REACTIONS (2)
  - DRUG EXPOSURE DURING PREGNANCY [None]
  - RESPIRATORY DISTRESS [None]
